FAERS Safety Report 6463057-2 (Version None)
Quarter: 2009Q4

REPORT INFORMATION
  Report Type: 
  Country: None (occurrence: None)
  Receive Date: 20091123
  Receipt Date: 20091110
  Transmission Date: 20100525
  Serious: Yes (Hospitalization, Other)
  Sender: FDA-Public Use
  Company Number: 230534M09USA

PATIENT
  Age: 64 Year
  Sex: Female
  Weight: 59 kg

DRUGS (4)
  1. REBIF [Suspect]
     Indication: MULTIPLE SCLEROSIS
     Dosage: 44 MCG, 3 IN 1 WEEKS, SUBCUTANEOUS; 44 MCG, 3 IN 1 WEEKS, SUBCUTANEOUS
     Route: 058
     Dates: start: 20050613, end: 20080414
  2. CALCIUM [Concomitant]
  3. POTASSIUM (POTASSIUM /00031401/) [Concomitant]
  4. IBUPROFEN [Concomitant]

REACTIONS (6)
  - BLOOD POTASSIUM DECREASED [None]
  - GASTROENTERITIS [None]
  - HEADACHE [None]
  - HYPOTHYROIDISM [None]
  - INJECTION SITE INFECTION [None]
  - THROMBOSIS [None]
